FAERS Safety Report 24843082 (Version 1)
Quarter: 2025Q1

REPORT INFORMATION
  Report Type: Report from Study
  Country: US (occurrence: US)
  Receive Date: 20250115
  Receipt Date: 20250115
  Transmission Date: 20250409
  Serious: No
  Sender: HRA PHARMA
  Company Number: US-ORG100014127-2024000135

PATIENT
  Age: 58 Year
  Sex: Female

DRUGS (10)
  1. LYSODREN [Suspect]
     Active Substance: MITOTANE
     Indication: Adrenal gland cancer
     Route: 048
     Dates: start: 20240413
  2. LYSODREN [Suspect]
     Active Substance: MITOTANE
     Indication: Adrenal gland cancer
     Dosage: 500 MG; 3 TABLETS 2 TIMES DAILY
     Route: 048
     Dates: end: 2024
  3. DEXAMETHASONE [Concomitant]
     Active Substance: DEXAMETHASONE
     Indication: Product used for unknown indication
  4. DILAUDID TAB 4MG [Concomitant]
     Indication: Product used for unknown indication
  5. GABAPENTIN [Concomitant]
     Active Substance: GABAPENTIN
     Indication: Product used for unknown indication
  6. LORATADINE TAB 10MG; [Concomitant]
     Indication: Product used for unknown indication
  7. LORAZEPAM TAB 0.5MG [Concomitant]
     Indication: Product used for unknown indication
  8. PROCHLORPER TAB 10 MG [Concomitant]
     Indication: Product used for unknown indication
  9. SENNA CAP 8.6MG [Concomitant]
     Indication: Product used for unknown indication
  10. UNSPECIFIED INGREDIENT [Concomitant]
     Active Substance: UNSPECIFIED INGREDIENT
     Indication: Product used for unknown indication

REACTIONS (2)
  - Nausea [Not Recovered/Not Resolved]
  - Product use complaint [Unknown]
